FAERS Safety Report 4317057-9 (Version None)
Quarter: 2004Q1

REPORT INFORMATION
  Report Type: 
  Country: None (occurrence: None)
  Receive Date: 20040312
  Receipt Date: 20040303
  Transmission Date: 20041129
  Serious: Yes (Other)
  Sender: FDA-Public Use
  Company Number: 2004202185US

PATIENT
  Age: 80 Year
  Sex: Female

DRUGS (8)
  1. DETROL [Suspect]
     Dosage: ORAL
     Route: 048
     Dates: start: 20020201, end: 20030801
  2. DITROPAN [Suspect]
     Indication: MICTURITION URGENCY
     Dosage: 10 MG, QD
     Dates: start: 20010101
  3. ACCUPRIL [Concomitant]
  4. LASIX [Concomitant]
  5. K-DUR 10 [Concomitant]
  6. BENZOYL PEROXIDE [Concomitant]
  7. SERETIDE MITE (FLUTICASONE) [Concomitant]
  8. ZOCOR [Concomitant]

REACTIONS (1)
  - TRANSIENT ISCHAEMIC ATTACK [None]
